FAERS Safety Report 13912467 (Version 2)
Quarter: 2017Q4

REPORT INFORMATION
  Report Type: Report from Study
  Country: US (occurrence: US)
  Receive Date: 20170828
  Receipt Date: 20171005
  Transmission Date: 20180320
  Serious: No
  Sender: FDA-Public Use
  Company Number: US-AMGEN-USASL2017127678

PATIENT
  Age: 51 Year
  Sex: Male
  Weight: 100.6 kg

DRUGS (1)
  1. REPATHA [Suspect]
     Active Substance: EVOLOCUMAB
     Indication: HYPERCHOLESTEROLAEMIA
     Dosage: UNK UNK, Q2WK
     Route: 030
     Dates: start: 20170208

REACTIONS (1)
  - Incorrect route of drug administration [Unknown]

NARRATIVE: CASE EVENT DATE: 20170208
